FAERS Safety Report 19147273 (Version 3)
Quarter: 2025Q3

REPORT INFORMATION
  Report Type: Report from Study
  Country: US (occurrence: US)
  Receive Date: 20210416
  Receipt Date: 20250902
  Transmission Date: 20251020
  Serious: Yes (Hospitalization)
  Sender: TEVA
  Company Number: US-TEVA-2021-US-1900638

PATIENT
  Age: 15 Month
  Sex: Male

DRUGS (5)
  1. VIGABATRIN [Suspect]
     Active Substance: VIGABATRIN
     Indication: Product used for unknown indication
     Route: 048
     Dates: start: 20200730
  2. AMOXICILLIN [Concomitant]
     Active Substance: AMOXICILLIN
  3. TOPAMAX [Concomitant]
     Active Substance: TOPIRAMATE
  4. CLONAZEPAM [Concomitant]
     Active Substance: CLONAZEPAM
     Route: 048
  5. PREDNISONE [Concomitant]
     Active Substance: PREDNISONE

REACTIONS (2)
  - Seizure [Unknown]
  - Product dose omission issue [Unknown]

NARRATIVE: CASE EVENT DATE: 20210401
